FAERS Safety Report 9200597 (Version 1)
Quarter: 2013Q1

REPORT INFORMATION
  Report Type: Spontaneous
  Country: US (occurrence: US)
  Receive Date: 20130329
  Receipt Date: 20130329
  Transmission Date: 20140127
  Serious: No
  Sender: FDA-Public Use
  Company Number: US-BAYER-2013-040106

PATIENT
  Sex: 0

DRUGS (4)
  1. ALEVE CAPLET [Suspect]
     Indication: HEADACHE
     Dosage: 2 DF, UNK
  2. MOTRIN [Concomitant]
  3. FLEXERIL [Concomitant]
  4. TRAMADOL [Concomitant]

REACTIONS (1)
  - Drug ineffective [None]
